FAERS Safety Report 24216040 (Version 1)
Quarter: 2024Q3

REPORT INFORMATION
  Report Type: Spontaneous
  Country: IT (occurrence: IT)
  Receive Date: 20240816
  Receipt Date: 20240816
  Transmission Date: 20241016
  Serious: Yes (Other)
  Sender: AUROBINDO
  Company Number: IT-ELI_LILLY_AND_COMPANY-IT202407015593

PATIENT
  Age: 75 Year
  Sex: Male
  Weight: 74 kg

DRUGS (10)
  1. CARBOPLATIN [Suspect]
     Active Substance: CARBOPLATIN
     Indication: Pleural mesothelioma
     Dosage: UNK (UNK UNK, UNKNOWN)
     Route: 065
     Dates: start: 20240409, end: 20240524
  2. CARBOPLATIN [Suspect]
     Active Substance: CARBOPLATIN
     Dosage: UNK (UNK UNK, UNKNOWN)
     Route: 065
     Dates: start: 20201105, end: 20210128
  3. CARBOPLATIN [Suspect]
     Active Substance: CARBOPLATIN
     Dosage: UNK (UNK UNK, UNKNOWN)
     Route: 065
     Dates: start: 20240206, end: 20240319
  4. ALIMTA [Suspect]
     Active Substance: PEMETREXED DISODIUM
     Indication: Pleural mesothelioma malignant
     Dosage: UNK (UNK UNK, CYCLICAL (6 CYCLE)
     Route: 065
     Dates: start: 20201105, end: 20210128
  5. ALIMTA [Suspect]
     Active Substance: PEMETREXED DISODIUM
     Dosage: UNK (UNK UNK, CYCLICAL (3 CYCLE)
     Route: 065
     Dates: start: 20240409, end: 20240524
  6. ALIMTA [Suspect]
     Active Substance: PEMETREXED DISODIUM
     Dosage: UNK (UNK UNK, CYCLICAL (3 CYCLE)
     Route: 065
     Dates: start: 20240206, end: 20240319
  7. CISPLATIN [Concomitant]
     Active Substance: CISPLATIN
     Indication: Pleural mesothelioma
     Dosage: UNK
     Route: 065
  8. NIVOLUMAB [Concomitant]
     Active Substance: NIVOLUMAB
     Indication: Product used for unknown indication
     Dosage: UNK
     Route: 065
  9. IPILIMUMAB [Concomitant]
     Active Substance: IPILIMUMAB
     Indication: Product used for unknown indication
     Dosage: UNK
     Route: 065
  10. PEMETREXED [Concomitant]
     Active Substance: PEMETREXED
     Indication: Pleural mesothelioma malignant
     Dosage: UNK
     Route: 065

REACTIONS (2)
  - Malignant neoplasm progression [Unknown]
  - Drug hypersensitivity [Unknown]
